FAERS Safety Report 8810169 (Version 2)
Quarter: 2012Q4

REPORT INFORMATION
  Report Type: 
  Country: DE (occurrence: DE)
  Receive Date: 20120926
  Receipt Date: 20121030
  Transmission Date: 20130627
  Serious: Yes (Death, Hospitalization)
  Sender: FDA-Public Use
  Company Number: DE-ROCHE-1130272

PATIENT
  Age: 37 Year
  Sex: Female
  Weight: 45 kg

DRUGS (10)
  1. PEGASYS [Suspect]
     Indication: HEPATITIS C
     Route: 058
     Dates: start: 20120221, end: 20120724
  2. COPEGUS [Suspect]
     Indication: PRODUCT USED FOR UNKNOWN INDICATION
     Route: 048
     Dates: start: 20120221, end: 20120730
  3. ALCOHOL [Suspect]
     Indication: PRODUCT USED FOR UNKNOWN INDICATION
     Route: 065
  4. PANTOPRAZOL [Concomitant]
     Route: 048
     Dates: start: 20120920
  5. TORASEMID [Concomitant]
     Indication: OEDEMA
     Route: 048
     Dates: start: 20100719
  6. SPIRONOLACTON [Concomitant]
     Indication: OEDEMA
     Route: 048
     Dates: start: 20120112
  7. ATOSIL [Concomitant]
     Indication: RESTLESSNESS
     Route: 048
  8. PROPRANOLOL [Concomitant]
     Indication: HYPERTHYROIDISM
     Route: 048
     Dates: start: 20120606
  9. DEKRISTOL [Concomitant]
     Indication: VITAMIN D DEFICIENCY
     Route: 048
     Dates: start: 20120515
  10. THIAMIN [Concomitant]
     Indication: VITAMIN B12 DEFICIENCY
     Route: 048
     Dates: start: 20120112

REACTIONS (2)
  - Hepatic failure [Fatal]
  - Alcohol abuse [Unknown]
